FAERS Safety Report 11533150 (Version 3)
Quarter: 2015Q4

REPORT INFORMATION
  Report Type: Spontaneous
  Country: US (occurrence: US)
  Receive Date: 20150921
  Receipt Date: 20151006
  Transmission Date: 20160304
  Serious: Yes (Death)
  Sender: FDA-Public Use
  Company Number: US-ACTELION-A-NJ2015-124030

PATIENT
  Age: 72 Year
  Sex: Female

DRUGS (1)
  1. TRACLEER [Suspect]
     Active Substance: BOSENTAN
     Indication: PULMONARY ARTERIAL HYPERTENSION
     Dosage: UNK
     Route: 048
     Dates: end: 20150909

REACTIONS (5)
  - Cardiac failure [Fatal]
  - Renal failure [Fatal]
  - Multi-organ failure [Fatal]
  - Respiratory failure [Fatal]
  - Shock [Fatal]

NARRATIVE: CASE EVENT DATE: 20150909
